FAERS Safety Report 18888098 (Version 3)
Quarter: 2021Q2

REPORT INFORMATION
  Report Type: Spontaneous
  Country: JP (occurrence: JP)
  Receive Date: 20210213
  Receipt Date: 20210413
  Transmission Date: 20210717
  Serious: Yes (Hospitalization)
  Sender: FDA-Public Use
  Company Number: JP-009507513-2102JPN000906J

PATIENT
  Age: 9 Decade
  Sex: Female

DRUGS (1)
  1. KEYTRUDA [Suspect]
     Active Substance: PEMBROLIZUMAB
     Indication: NON-SMALL CELL LUNG CANCER
     Dosage: 200 MILLIGRAM, Q3W
     Route: 041
     Dates: start: 20200407, end: 202101

REACTIONS (5)
  - Eyelid ptosis [Recovering/Resolving]
  - Decreased appetite [Recovering/Resolving]
  - Visual acuity reduced [Recovering/Resolving]
  - Hyponatraemia [Recovering/Resolving]
  - Blood corticotrophin decreased [Recovering/Resolving]

NARRATIVE: CASE EVENT DATE: 20210109
